FAERS Safety Report 11620718 (Version 2)
Quarter: 2016Q1

REPORT INFORMATION
  Report Type: Report from Study
  Country: JP (occurrence: JP)
  Receive Date: 20151012
  Receipt Date: 20160304
  Transmission Date: 20160525
  Serious: Yes (Other)
  Sender: FDA-Public Use
  Company Number: JP-UCBSA-2014000440

PATIENT
  Age: 71 Year
  Sex: Female
  Weight: 45.7 kg

DRUGS (11)
  1. FOLIAMIN [Concomitant]
     Active Substance: FOLIC ACID
     Dosage: 5 MG/7 DAYS
     Route: 048
  2. EDIROL [Concomitant]
     Active Substance: ELDECALCITOL
     Indication: PRODUCT USED FOR UNKNOWN INDICATION
     Dosage: 0.75 ?G DAILY
     Route: 048
  3. CERTOLIZUMAB PEGOL RA [Suspect]
     Active Substance: CERTOLIZUMAB PEGOL
     Indication: RHEUMATOID ARTHRITIS
     Dosage: 400 MG, EV 4 WEEKS
     Route: 058
     Dates: start: 20130603, end: 20140820
  4. DEPAS [Concomitant]
     Active Substance: ETIZOLAM
     Dosage: DAILY DOSE:0.5 MG
     Route: 048
  5. VOALLA [Concomitant]
     Dosage: DAILY ODSE: 10 G/60 DAYS
     Route: 062
  6. BONOTEO [Concomitant]
     Active Substance: MINODRONIC ACID
     Dosage: DAILY DOSE: 50 MG/30 DAYS
     Route: 048
  7. CERTOLIZUMAB PEGOL RA [Suspect]
     Active Substance: CERTOLIZUMAB PEGOL
     Dosage: 400 MG, EV 4 WEEKS
     Route: 058
     Dates: start: 20141015
  8. EVISTA [Concomitant]
     Active Substance: RALOXIFENE HYDROCHLORIDE
     Indication: PRODUCT USED FOR UNKNOWN INDICATION
     Dosage: 60 MG DAILY
     Route: 048
  9. METOLATE [Suspect]
     Active Substance: METHOTREXATE
     Indication: RHEUMATOID ARTHRITIS
     Dosage: 8 MG, WEEKLY (QW)
     Route: 048
     Dates: end: 20150430
  10. SELTOUCH [Concomitant]
     Active Substance: FELBINAC
     Dosage: DAILY ODSE: 21 DF
     Route: 061
  11. MYSLEE [Concomitant]
     Active Substance: ZOLPIDEM TARTRATE
     Dosage: DAILY DOSE: 5 MG
     Route: 048

REACTIONS (2)
  - Alveolar osteitis [Recovered/Resolved]
  - Pharyngeal mass [Not Recovered/Not Resolved]

NARRATIVE: CASE EVENT DATE: 20140116
